FAERS Safety Report 14581320 (Version 1)
Quarter: 2018Q1

REPORT INFORMATION
  Report Type: Spontaneous
  Country: US (occurrence: US)
  Receive Date: 20180228
  Receipt Date: 20180228
  Transmission Date: 20180509
  Serious: No
  Sender: FDA-Public Use
  Company Number: US-JNJFOC-20180219229

PATIENT
  Sex: Female

DRUGS (1)
  1. MICRONOR [Suspect]
     Active Substance: NORETHINDRONE
     Indication: CONTRACEPTION
     Route: 048

REACTIONS (1)
  - Product colour issue [Unknown]

NARRATIVE: CASE EVENT DATE: 2016
